FAERS Safety Report 8085111-4 (Version None)
Quarter: 2012Q1

REPORT INFORMATION
  Report Type: 
  Country: None (occurrence: None)
  Receive Date: 20120128
  Receipt Date: 20110314
  Transmission Date: 20120608
  Serious: No
  Sender: FDA-Public Use
  Company Number: US-ABBOTT-11P-163-0711448-00

PATIENT
  Age: 68 Year
  Sex: Female

DRUGS (16)
  1. CLOBETASOL PROPRIONATE [Concomitant]
     Indication: PSORIASIS
  2. IBUPROFEN [Concomitant]
     Indication: PRODUCT USED FOR UNKNOWN INDICATION
  3. NEURONTIN [Concomitant]
     Indication: MIGRAINE
     Dosage: 1 IN AM + 2 IN PM
  4. ALLERGY SHOTS [Concomitant]
     Indication: PRODUCT USED FOR UNKNOWN INDICATION
  5. UPRUISON [Concomitant]
     Indication: LACERATION
  6. ATACAND [Concomitant]
     Indication: BLOOD PRESSURE
     Dates: start: 20110314
  7. HUMIRA [Suspect]
     Indication: PSORIASIS
     Dates: start: 20110101
  8. EFFEXOR [Concomitant]
     Indication: MIGRAINE
  9. CLARITIN [Concomitant]
     Indication: HYPERSENSITIVITY
  10. LOSARTIN PLUS [Concomitant]
     Indication: BLOOD PRESSURE
     Dosage: 50/12.5MG
  11. BACITRACIN [Concomitant]
     Indication: LACERATION
  12. EXCEDRIN (MIGRAINE) [Concomitant]
     Indication: MIGRAINE
  13. KETOCONAZOLE [Concomitant]
     Indication: PSORIASIS
  14. ZYRTEC [Concomitant]
     Indication: HYPERSENSITIVITY
  15. MAXALT-MLT [Concomitant]
     Indication: MIGRAINE
  16. DULERA ORAL INHALATION [Concomitant]
     Indication: ASTHMA

REACTIONS (7)
  - LARYNGITIS [None]
  - PYREXIA [None]
  - HYPERSENSITIVITY [None]
  - RASH PRURITIC [None]
  - COUGH [None]
  - BRONCHITIS [None]
  - SKIN BURNING SENSATION [None]
